FAERS Safety Report 6895778-1 (Version None)
Quarter: 2010Q3

REPORT INFORMATION
  Report Type: 
  Country: None (occurrence: None)
  Receive Date: 20100802
  Receipt Date: 20100721
  Transmission Date: 20110219
  Serious: Yes (Other)
  Sender: FDA-Public Use
  Company Number: US-PFIZER INC-2010092078

PATIENT
  Sex: Male

DRUGS (2)
  1. LYRICA [Suspect]
     Dosage: 150 MG, 2X/DAY
     Route: 048
     Dates: start: 20100301, end: 20100701
  2. NORCO [Concomitant]
     Indication: BACK PAIN
     Dosage: UNK

REACTIONS (10)
  - ABDOMINAL DISTENSION [None]
  - BACK PAIN [None]
  - CHEST PAIN [None]
  - FEELING ABNORMAL [None]
  - HEPATIC PAIN [None]
  - LIVER INJURY [None]
  - MUSCLE SPASMS [None]
  - RENAL IMPAIRMENT [None]
  - RENAL PAIN [None]
  - WEIGHT DECREASED [None]
